FAERS Safety Report 23905518 (Version 1)
Quarter: 2024Q2

REPORT INFORMATION
  Report Type: Spontaneous
  Country: HR (occurrence: HR)
  Receive Date: 20240527
  Receipt Date: 20240527
  Transmission Date: 20240716
  Serious: Yes (Other)
  Sender: FDA-Public Use
  Company Number: None

PATIENT
  Age: 6 Year
  Sex: Female
  Weight: 17.5 kg

DRUGS (1)
  1. VENTOLIN [Suspect]
     Active Substance: ALBUTEROL SULFATE
     Indication: Cough
     Dosage: THE STRENGTH OF THE MEDICINE?100 MICROGRAMS/ 5MG/ML??DOSAGE?2 PUSHES (200 MICROGRAMS) / 2.5 MG
     Route: 065
     Dates: start: 20240503, end: 20240503

REACTIONS (4)
  - Cough [Recovering/Resolving]
  - Bronchospasm [Recovering/Resolving]
  - Wheezing [Recovering/Resolving]
  - Palpitations [Recovering/Resolving]

NARRATIVE: CASE EVENT DATE: 20240503
